FAERS Safety Report 8381068 (Version 2)
Quarter: 2013Q1

REPORT INFORMATION
  Report Type: Report from Study
  Country: US (occurrence: US)
  Receive Date: 20120129
  Receipt Date: 20130129
  Transmission Date: 20140127
  Serious: Yes (Other)
  Sender: FDA-Public Use
  Company Number: US-ABBOTT-11P-163-0862965-00

PATIENT
  Age: 57 None
  Sex: Female
  Weight: 99.88 kg

DRUGS (9)
  1. HUMIRA 40 MG/0.8 ML PEN [Suspect]
     Indication: RHEUMATOID ARTHRITIS
     Route: 058
     Dates: start: 201004
  2. HUMIRA 40 MG/0.8 ML PEN [Suspect]
  3. CARVEDILOL [Concomitant]
     Indication: CARDIAC DISORDER
  4. LISINOPRIL [Concomitant]
     Indication: HYPERTENSION
  5. SPIRONOLACTONE [Concomitant]
     Indication: HYPERTENSION
  6. FOLIC ACID [Concomitant]
     Indication: RHEUMATOID ARTHRITIS
  7. MTX [Concomitant]
     Indication: RHEUMATOID ARTHRITIS
  8. METFORMIN [Concomitant]
     Indication: TYPE 2 DIABETES MELLITUS
     Dosage: ONCE DAILY AT BEDTIME
  9. RANITIDINE [Concomitant]
     Indication: ABDOMINAL DISCOMFORT

REACTIONS (5)
  - Pancreatitis acute [Recovering/Resolving]
  - Toothache [Recovering/Resolving]
  - Sinusitis [Recovered/Resolved]
  - Pain [Unknown]
  - Abdominal pain upper [Recovered/Resolved]
